FAERS Safety Report 11028782 (Version 3)
Quarter: 2015Q2

REPORT INFORMATION
  Report Type: Spontaneous
  Country: JP (occurrence: JP)
  Receive Date: 20150414
  Receipt Date: 20150508
  Transmission Date: 20150821
  Serious: Yes (Other)
  Sender: FDA-Public Use
  Company Number: JP-009507513-1504JPN005118

PATIENT
  Age: 43 Year
  Sex: Male
  Weight: 58 kg

DRUGS (4)
  1. NASEA [Concomitant]
     Active Substance: RAMOSETRON HYDROCHLORIDE
     Indication: VOMITING
     Dosage: 0.1 MG, QD
     Route: 048
     Dates: start: 20120613
  2. ALEVIATIN [Concomitant]
     Active Substance: PHENYTOIN SODIUM
     Indication: SEIZURE
     Dosage: 100 MG, BID
     Route: 048
     Dates: start: 20121025
  3. TEMODAL [Suspect]
     Active Substance: TEMOZOLOMIDE
     Dosage: 340 MG, QD
     Route: 048
     Dates: start: 20120824
  4. TEMODAL [Suspect]
     Active Substance: TEMOZOLOMIDE
     Indication: MALIGNANT GLIOMA
     Dosage: 120 MG, QD
     Route: 048
     Dates: start: 20120613, end: 20120724

REACTIONS (1)
  - Cerebellar haemorrhage [Recovered/Resolved]
